FAERS Safety Report 18383228 (Version 2)
Quarter: 2020Q4

REPORT INFORMATION
  Report Type: Spontaneous
  Country: DE (occurrence: DE)
  Receive Date: 20201014
  Receipt Date: 20201103
  Transmission Date: 20210114
  Serious: Yes (Other)
  Sender: FDA-Public Use
  Company Number: DE-JNJFOC-20201012423

PATIENT
  Age: 53 Year
  Sex: Male

DRUGS (1)
  1. ERLEADA [Suspect]
     Active Substance: APALUTAMIDE
     Indication: PROSTATE CANCER METASTATIC
     Route: 048

REACTIONS (2)
  - Syncope [Unknown]
  - Myoclonic epilepsy [Unknown]

NARRATIVE: CASE EVENT DATE: 20200806
